FAERS Safety Report 15080398 (Version 1)
Quarter: 2018Q2

REPORT INFORMATION
  Report Type: Spontaneous
  Country: US (occurrence: US)
  Receive Date: 20180628
  Receipt Date: 20180628
  Transmission Date: 20180711
  Serious: Yes (Other)
  Sender: FDA-Public Use
  Company Number: US-AMGEN-USASP2018085371

PATIENT
  Age: 51 Year
  Sex: Female

DRUGS (1)
  1. PROLIA [Suspect]
     Active Substance: DENOSUMAB
     Indication: OSTEOPOROSIS
     Dosage: 60 MG, Q6MO
     Route: 065
     Dates: start: 2017

REACTIONS (9)
  - Meniscus injury [Unknown]
  - Restless legs syndrome [Unknown]
  - Myalgia [Unknown]
  - Pain in extremity [Unknown]
  - Osteonecrosis [Unknown]
  - Arthralgia [Unknown]
  - Plantar fasciitis [Unknown]
  - Discomfort [Unknown]
  - Amnesia [Unknown]
